FAERS Safety Report 19872067 (Version 1)
Quarter: 2021Q3

REPORT INFORMATION
  Report Type: Spontaneous
  Country: BE (occurrence: BE)
  Receive Date: 20210922
  Receipt Date: 20210922
  Transmission Date: 20211014
  Serious: Yes (Hospitalization)
  Sender: FDA-Public Use
  Company Number: BE-BAYER-2021A215130

PATIENT
  Age: 57 Year
  Sex: Male

DRUGS (1)
  1. STIVARGA [Suspect]
     Active Substance: REGORAFENIB
     Dosage: DAILY DOSE 80 MG
     Dates: start: 20210911, end: 20210915

REACTIONS (4)
  - Fatigue [None]
  - Off label use [None]
  - Anal incontinence [None]
  - Pyrexia [None]

NARRATIVE: CASE EVENT DATE: 20210911
